FAERS Safety Report 7474672-1 (Version None)
Quarter: 2011Q1

REPORT INFORMATION
  Report Type: 
  Country: None (occurrence: None)
  Receive Date: 20110302
  Receipt Date: 20101202
  Transmission Date: 20110831
  Serious: Yes (Hospitalization, Disabling)
  Sender: FDA-Public Use
  Company Number: 163-21880-10042125

PATIENT
  Age: 58 Year
  Sex: Female
  Weight: 144.6975 kg

DRUGS (23)
  1. ASPIRIN [Concomitant]
  2. IMODIUM [Concomitant]
  3. DEXAMETHASONE [Suspect]
     Indication: MULTIPLE MYELOMA
     Dosage: 1 MG, PO, 20 MG, PO
     Route: 048
     Dates: start: 20100203
  4. DEXAMETHASONE [Suspect]
     Indication: MULTIPLE MYELOMA
     Dosage: 1 MG, PO, 20 MG, PO
     Route: 048
     Dates: start: 20100101
  5. ALLEGRA [Concomitant]
  6. CYCLOSPORINE [Concomitant]
  7. CULTURELLE (CULTURELLE) [Concomitant]
  8. PREDNISOLONE SUS (PREDNISOLONE) [Concomitant]
  9. AREDIA [Concomitant]
  10. ACTIGALL [Concomitant]
  11. VELCADE [Suspect]
     Indication: MULTIPLE MYELOMA
     Dates: start: 20100203, end: 20100428
  12. EYE DROPS (TETRYZOLINE HYDROCHLORIDE) [Concomitant]
  13. REVLIMID [Suspect]
     Indication: MULTIPLE MYELOMA
     Dosage: 25 MG, 1 IN 1 D, PO; 15 MG, DAILY FOR 14 DAYS, PO, DAILY FOR 14 DAYS, PO; DAILY FOR 14 DAYS, PO
     Route: 048
     Dates: start: 20100224
  14. REVLIMID [Suspect]
     Indication: MULTIPLE MYELOMA
     Dosage: 25 MG, 1 IN 1 D, PO; 15 MG, DAILY FOR 14 DAYS, PO, DAILY FOR 14 DAYS, PO; DAILY FOR 14 DAYS, PO
     Route: 048
     Dates: start: 20100208
  15. REVLIMID [Suspect]
     Indication: MULTIPLE MYELOMA
     Dosage: 25 MG, 1 IN 1 D, PO; 15 MG, DAILY FOR 14 DAYS, PO, DAILY FOR 14 DAYS, PO; DAILY FOR 14 DAYS, PO
     Route: 048
     Dates: start: 20100326
  16. REVLIMID [Suspect]
     Indication: MULTIPLE MYELOMA
     Dosage: 25 MG, 1 IN 1 D, PO; 15 MG, DAILY FOR 14 DAYS, PO, DAILY FOR 14 DAYS, PO; DAILY FOR 14 DAYS, PO
     Route: 048
     Dates: start: 20100421, end: 20100512
  17. PAXIL CR [Concomitant]
  18. IMURAN [Concomitant]
  19. VESICARE [Concomitant]
  20. ZETIA [Concomitant]
  21. OMEPRAZOLE [Concomitant]
  22. ASACOL [Concomitant]
  23. CALCITRIOL [Concomitant]

REACTIONS (7)
  - DIARRHOEA [None]
  - NEUROPATHY PERIPHERAL [None]
  - CONSTIPATION [None]
  - RASH [None]
  - EYE INFLAMMATION [None]
  - PNEUMONIA [None]
  - URINARY TRACT INFECTION [None]
